FAERS Safety Report 20126716 (Version 1)
Quarter: 2021Q4

REPORT INFORMATION
  Report Type: Spontaneous
  Country: US (occurrence: US)
  Receive Date: 20211129
  Receipt Date: 20211129
  Transmission Date: 20220303
  Serious: No
  Sender: FDA-Public Use
  Company Number: US-GSKCCFUS-Case-01228512_AE-72008

PATIENT
  Age: 49 Year
  Sex: Male

DRUGS (1)
  1. ADVAIR DISKUS [Suspect]
     Active Substance: FLUTICASONE PROPIONATE\SALMETEROL XINAFOATE
     Indication: Product used for unknown indication
     Dosage: UNK, 100/50MCG
     Route: 055
     Dates: start: 20211124

REACTIONS (1)
  - Device use error [Recovered/Resolved]

NARRATIVE: CASE EVENT DATE: 20211124
